FAERS Safety Report 19411181 (Version 1)
Quarter: 2021Q2

REPORT INFORMATION
  Report Type: Spontaneous
  Country: US (occurrence: US)
  Receive Date: 20210614
  Receipt Date: 20210614
  Transmission Date: 20210717
  Serious: No
  Sender: FDA-Public Use
  Company Number: None

PATIENT
  Age: 86 Year
  Sex: Male
  Weight: 126.1 kg

DRUGS (1)
  1. WARFARIN (WARFARIN NA (EXELAN) 3MG TAB) [Suspect]
     Active Substance: WARFARIN SODIUM
     Indication: ATRIAL FIBRILLATION
     Route: 048
     Dates: start: 20170626, end: 20201006

REACTIONS (3)
  - Renal failure [None]
  - International normalised ratio increased [None]
  - Gastric haemorrhage [None]

NARRATIVE: CASE EVENT DATE: 20201006
